FAERS Safety Report 24712874 (Version 1)
Quarter: 2024Q4

REPORT INFORMATION
  Report Type: Spontaneous
  Country: US (occurrence: None)
  Receive Date: 20241209
  Receipt Date: 20241209
  Transmission Date: 20250115
  Serious: Yes (Hospitalization)
  Sender: Public
  Company Number: None

PATIENT
  Sex: Male
  Weight: 90.72 kg

DRUGS (3)
  1. WINREVAIR [Suspect]
     Active Substance: SOTATERCEPT-CSRK
     Indication: Pulmonary arterial hypertension
     Dosage: OTHER FREQUENCY : EVERY 3 WEEKS;?
     Route: 058
     Dates: start: 202406
  2. VELETRI [Suspect]
     Active Substance: EPOPROSTENOL
  3. EPOPROSTENOL SDV [Concomitant]

REACTIONS (2)
  - Pulmonary arterial wedge pressure increased [None]
  - Therapy cessation [None]
